FAERS Safety Report 23924578 (Version 1)
Quarter: 2024Q2

REPORT INFORMATION
  Report Type: Spontaneous
  Country: IT (occurrence: IT)
  Receive Date: 20240531
  Receipt Date: 20240531
  Transmission Date: 20240716
  Serious: Yes (Other)
  Sender: FDA-Public Use
  Company Number: None

PATIENT
  Sex: Female

DRUGS (4)
  1. LAMOTRIGINE [Interacting]
     Active Substance: LAMOTRIGINE
     Indication: Major depression
     Dosage: UNK, UNK (DOSE REMODULATION)
     Route: 065
  2. LAMOTRIGINE [Interacting]
     Active Substance: LAMOTRIGINE
     Indication: Disease recurrence
     Dosage: UNK, UNK
     Route: 065
  3. SERTRALINE [Interacting]
     Active Substance: SERTRALINE HYDROCHLORIDE
     Indication: Disease recurrence
     Dosage: UNK, UNK, DOSE  REMODULATION
     Route: 065
  4. SERTRALINE [Interacting]
     Active Substance: SERTRALINE HYDROCHLORIDE
     Indication: Major depression
     Dosage: UNK, UNK
     Route: 065

REACTIONS (3)
  - Drug interaction [Recovering/Resolving]
  - Drug-induced liver injury [Recovering/Resolving]
  - Acute hepatic failure [Recovering/Resolving]
